FAERS Safety Report 9759772 (Version 2)
Quarter: 2013Q4

REPORT INFORMATION
  Report Type: Spontaneous
  Country: JP (occurrence: JP)
  Receive Date: 20131216
  Receipt Date: 20131216
  Transmission Date: 20140711
  Serious: Yes (Other)
  Sender: FDA-Public Use
  Company Number: JP-MERCK-1312JPN005322

PATIENT
  Age: 70 Year
  Sex: Female

DRUGS (7)
  1. GLACTIV [Suspect]
     Indication: TYPE 2 DIABETES MELLITUS
     Dosage: 50 MG PER DAY
     Route: 048
     Dates: start: 201008
  2. RIFAMPIN [Interacting]
     Dosage: 300 MG DAILY
     Route: 048
     Dates: start: 201209
  3. GLICLAZIDE [Interacting]
     Indication: TYPE 2 DIABETES MELLITUS
     Dosage: 40 MG PER DAY
     Route: 048
     Dates: start: 201008, end: 201211
  4. GLICLAZIDE [Interacting]
     Dosage: 80 MG PER DAY
     Route: 048
     Dates: start: 201211, end: 2013
  5. GLICLAZIDE [Interacting]
     Dosage: UNK
     Route: 048
     Dates: start: 2013
  6. ESANBUTOL [Concomitant]
     Indication: ATYPICAL MYCOBACTERIAL INFECTION
     Dosage: 500 MG PER DAY
     Dates: start: 201209
  7. CLARITHROMYCIN [Concomitant]
     Indication: ATYPICAL MYCOBACTERIAL INFECTION
     Dosage: 600 MG PER DAY
     Dates: start: 201209

REACTIONS (2)
  - Atypical mycobacterial infection [Recovered/Resolved]
  - Diabetes mellitus inadequate control [Recovered/Resolved]
